FAERS Safety Report 6542859-8 (Version None)
Quarter: 2010Q1

REPORT INFORMATION
  Report Type: 
  Country: None (occurrence: None)
  Receive Date: 20100120
  Receipt Date: 20100108
  Transmission Date: 20100710
  Serious: Yes (Other)
  Sender: FDA-Public Use
  Company Number: US-BIOGENIDEC-2010BI001066

PATIENT
  Age: 38 Year
  Sex: Male

DRUGS (4)
  1. TYSABRI [Suspect]
     Indication: MULTIPLE SCLEROSIS
     Route: 042
     Dates: start: 20080507
  2. VITAMIN D [Concomitant]
     Indication: SUPPLEMENTATION THERAPY
  3. IBUPROFEN [Concomitant]
     Indication: PAIN
  4. ADIPEX [Concomitant]
     Indication: WEIGHT LOSS DIET
     Dates: start: 20091201

REACTIONS (1)
  - CONVULSION [None]
